FAERS Safety Report 25047234 (Version 1)
Quarter: 2025Q1

REPORT INFORMATION
  Report Type: Spontaneous
  Country: PT (occurrence: PT)
  Receive Date: 20250306
  Receipt Date: 20250306
  Transmission Date: 20250408
  Serious: Yes (Death, Hospitalization)
  Sender: PFIZER
  Company Number: PT-009507513-2257816

PATIENT
  Age: 74 Year
  Sex: Female

DRUGS (2)
  1. AXITINIB [Suspect]
     Active Substance: AXITINIB
     Indication: Renal cell carcinoma stage IV
     Dates: start: 202407
  2. PEMBROLIZUMAB [Suspect]
     Active Substance: PEMBROLIZUMAB
     Indication: Clear cell renal cell carcinoma
     Dates: start: 202407

REACTIONS (5)
  - Abdominal pain [Fatal]
  - Myasthenic syndrome [Recovered/Resolved]
  - Rash pruritic [Unknown]
  - Eyelid ptosis [Unknown]
  - Diplopia [Unknown]

NARRATIVE: CASE EVENT DATE: 20241001
